FAERS Safety Report 10488858 (Version 1)
Quarter: 2014Q3

REPORT INFORMATION
  Report Type: Spontaneous
  Country: US (occurrence: None)
  Receive Date: 20140815
  Receipt Date: 20140815
  Transmission Date: 20150326
  Serious: Yes (Hospitalization, Other)
  Sender: FDA-Public Use
  Company Number: ADR-2013-02061

PATIENT
  Age: 41 Year
  Sex: Female

DRUGS (2)
  1. BACLOFEN. [Suspect]
     Active Substance: BACLOFEN
     Indication: PAIN
  2. BUPIVACAINE [Suspect]
     Active Substance: BUPIVACAINE

REACTIONS (1)
  - Pain [None]

NARRATIVE: CASE EVENT DATE: 20131102
